FAERS Safety Report 25252362 (Version 2)
Quarter: 2025Q2

REPORT INFORMATION
  Report Type: Spontaneous
  Country: IT (occurrence: IT)
  Receive Date: 20250429
  Receipt Date: 20250620
  Transmission Date: 20250716
  Serious: Yes (Other)
  Sender: MYLAN
  Company Number: IT-MYLANLABS-2025M1036112

PATIENT
  Sex: Male
  Weight: 14.5 kg

DRUGS (8)
  1. DIAZEPAM [Suspect]
     Active Substance: DIAZEPAM
     Indication: Crying
  2. DIAZEPAM [Suspect]
     Active Substance: DIAZEPAM
     Indication: Middle insomnia
     Route: 065
  3. DIAZEPAM [Suspect]
     Active Substance: DIAZEPAM
     Route: 065
  4. DIAZEPAM [Suspect]
     Active Substance: DIAZEPAM
  5. NIAPRAZINE [Suspect]
     Active Substance: NIAPRAZINE
     Indication: Crying
  6. NIAPRAZINE [Suspect]
     Active Substance: NIAPRAZINE
     Indication: Middle insomnia
     Route: 065
  7. NIAPRAZINE [Suspect]
     Active Substance: NIAPRAZINE
     Route: 065
  8. NIAPRAZINE [Suspect]
     Active Substance: NIAPRAZINE

REACTIONS (4)
  - Paradoxical drug reaction [Recovering/Resolving]
  - Agitation [Recovering/Resolving]
  - Irritability [Recovering/Resolving]
  - Drug ineffective [Unknown]
